FAERS Safety Report 19109763 (Version 4)
Quarter: 2021Q2

REPORT INFORMATION
  Report Type: Spontaneous
  Country: BD (occurrence: BD)
  Receive Date: 20210409
  Receipt Date: 20210521
  Transmission Date: 20210717
  Serious: Yes (Hospitalization, Other)
  Sender: FDA-Public Use
  Company Number: BD-ROCHE-2802766

PATIENT
  Age: 46 Year
  Sex: Male

DRUGS (2)
  1. LUCENTIS [Suspect]
     Active Substance: RANIBIZUMAB
     Indication: DIABETIC RETINAL OEDEMA
     Dosage: SOLUTION FOR INJECTION 10 MG/ML
     Route: 047
     Dates: start: 20210321
  2. LUCENTIS [Suspect]
     Active Substance: RANIBIZUMAB
     Route: 047
     Dates: start: 20210401

REACTIONS (8)
  - Endophthalmitis [Not Recovered/Not Resolved]
  - Product contamination [Unknown]
  - Eye disorder [Not Recovered/Not Resolved]
  - Lacrimation increased [Not Recovered/Not Resolved]
  - Product quality issue [Unknown]
  - Vision blurred [Not Recovered/Not Resolved]
  - Eye inflammation [Unknown]
  - Blindness [Unknown]

NARRATIVE: CASE EVENT DATE: 20210321
